FAERS Safety Report 9609186 (Version 3)
Quarter: 2014Q1

REPORT INFORMATION
  Report Type: Report from Study
  Country: BR (occurrence: BR)
  Receive Date: 20131009
  Receipt Date: 20140122
  Transmission Date: 20141002
  Serious: Yes (Hospitalization, Other)
  Sender: FDA-Public Use
  Company Number: BR-ABBVIE-13P-020-1128574-00

PATIENT
  Age: 22 Year
  Sex: Female
  Weight: 60 kg

DRUGS (8)
  1. HUMIRA [Suspect]
     Indication: CROHN^S DISEASE
     Route: 058
     Dates: end: 201307
  2. AZATHIOPRINE [Suspect]
     Indication: CROHN^S DISEASE
     Route: 048
     Dates: start: 2011
  3. AZATHIOPRINE [Suspect]
     Route: 048
  4. AZATHIOPRINE [Suspect]
     Route: 048
     Dates: start: 201307
  5. PREDNISONE [Concomitant]
     Indication: COLITIS
     Route: 048
     Dates: start: 2010, end: 201301
  6. PREDNISONE [Concomitant]
     Route: 048
     Dates: start: 201308
  7. MESALAZINE [Concomitant]
     Indication: CROHN^S DISEASE
     Route: 048
     Dates: start: 2010, end: 201301
  8. MESALAZINE [Concomitant]
     Route: 048
     Dates: start: 201308

REACTIONS (7)
  - Condition aggravated [Unknown]
  - Gastrointestinal infection [Recovering/Resolving]
  - Haemorrhage [Recovered/Resolved]
  - Proctitis [Recovered/Resolved]
  - Gastrointestinal inflammation [Recovered/Resolved]
  - Immunodeficiency [Recovering/Resolving]
  - Anaemia [Recovering/Resolving]
